FAERS Safety Report 21155736 (Version 2)
Quarter: 2022Q4

REPORT INFORMATION
  Report Type: Report from Study
  Country: CN (occurrence: CN)
  Receive Date: 20220801
  Receipt Date: 20221019
  Transmission Date: 20230112
  Serious: Yes (Other)
  Sender: FDA-Public Use
  Company Number: CN-NOVARTISPH-NVSC2022CN172824

PATIENT
  Age: 53 Year
  Sex: Female
  Weight: 40 kg

DRUGS (8)
  1. CERITINIB [Suspect]
     Active Substance: CERITINIB
     Indication: Non-small cell lung cancer
     Dosage: 450 MG, QD
     Route: 048
     Dates: start: 202102
  2. CERITINIB [Suspect]
     Active Substance: CERITINIB
     Dosage: 3 DOSAGE FORM (450 MG)
     Route: 048
     Dates: end: 20211023
  3. LEUCOGEN [Concomitant]
     Active Substance: LEUCOGEN
     Indication: White blood cell count abnormal
     Dosage: 20 MG
     Route: 048
     Dates: start: 20210222
  4. LEUCOGEN [Concomitant]
     Active Substance: LEUCOGEN
     Dosage: 20 MG, TID
     Route: 048
     Dates: start: 202103, end: 202107
  5. LEUCOGEN [Concomitant]
     Active Substance: LEUCOGEN
     Dosage: 40 MG
     Route: 048
     Dates: start: 20210616
  6. CIMETIDINE [Concomitant]
     Active Substance: CIMETIDINE
     Indication: Prophylaxis
     Dosage: 400 MG, GTT
     Route: 042
     Dates: start: 20210616, end: 20210616
  7. MANNITOL [Concomitant]
     Active Substance: MANNITOL
     Indication: Prophylaxis
     Dosage: 25 G, GTT, QD
     Route: 042
     Dates: start: 20211022, end: 20211022
  8. RECOMBINANT HUMAN GRANULOCYTE COLONY STIMULAT [Concomitant]
     Indication: White blood cell count abnormal
     Dosage: 150 UG, H
     Route: 058
     Dates: start: 20211022, end: 20211022

REACTIONS (4)
  - Blindness [Unknown]
  - Headache [Recovered/Resolved]
  - Amnesia [Not Recovered/Not Resolved]
  - Fatigue [Recovered/Resolved]

NARRATIVE: CASE EVENT DATE: 20210201
